FAERS Safety Report 8544037-X (Version None)
Quarter: 2012Q3

REPORT INFORMATION
  Report Type: 
  Country: None (occurrence: None)
  Receive Date: 20120727
  Receipt Date: 20120717
  Transmission Date: 20120928
  Serious: Yes (Hospitalization)
  Sender: FDA-Public Use
  Company Number: US-PFIZER INC-2012172544

PATIENT
  Sex: Female

DRUGS (5)
  1. HUMALOG [Concomitant]
     Indication: TYPE 2 DIABETES MELLITUS
     Dosage: 40 MG, 3X/DAY
  2. NEURONTIN [Suspect]
     Indication: NEUROPATHY PERIPHERAL
     Dosage: 1000 MG, 3X/DAY
     Route: 048
     Dates: start: 20100101, end: 20120713
  3. METHADONE HCL [Suspect]
     Dosage: 10 MG, 2X/DAY
  4. METHADONE HCL [Suspect]
     Indication: PAIN
     Dosage: 10 MG, UNK
  5. LANTUS [Concomitant]
     Indication: TYPE 2 DIABETES MELLITUS
     Dosage: ^100 MG^ DAILY AT NIGHT

REACTIONS (7)
  - OEDEMA PERIPHERAL [None]
  - PYREXIA [None]
  - DRUG INEFFECTIVE [None]
  - SNAKE BITE [None]
  - LOCALISED INFECTION [None]
  - PAIN [None]
  - PARAESTHESIA [None]
